FAERS Safety Report 6847079-5 (Version None)
Quarter: 2010Q3

REPORT INFORMATION
  Report Type: 
  Country: None (occurrence: None)
  Receive Date: 20100716
  Receipt Date: 20100708
  Transmission Date: 20110219
  Serious: No
  Sender: FDA-Public Use
  Company Number: US-BIOGENIDEC-2010BI023454

PATIENT
  Sex: Female

DRUGS (3)
  1. TYSABRI [Suspect]
     Indication: MULTIPLE SCLEROSIS
     Route: 042
     Dates: start: 20071010, end: 20080201
  2. COPAXONE [Concomitant]
     Indication: MULTIPLE SCLEROSIS
  3. REBIF [Concomitant]
     Indication: MULTIPLE SCLEROSIS

REACTIONS (2)
  - DRUG INEFFECTIVE [None]
  - MUSCLE SPASMS [None]
